FAERS Safety Report 8823818 (Version 2)
Quarter: 2013Q1

REPORT INFORMATION
  Report Type: Spontaneous
  Country: US (occurrence: US)
  Receive Date: 20121003
  Receipt Date: 20130124
  Transmission Date: 20140127
  Serious: No
  Sender: FDA-Public Use
  Company Number: US-PFIZER INC-2012244052

PATIENT
  Age: 60 Year
  Sex: Female
  Weight: 113 kg

DRUGS (3)
  1. LYRICA [Suspect]
     Indication: FIBROMYALGIA
     Dosage: 250 MG, DAILY
     Route: 048
  2. LYRICA [Suspect]
     Dosage: 250 MG, 2X/DAY
     Route: 048
     Dates: start: 200908, end: 2011
  3. LYRICA [Suspect]
     Dosage: UNK
     Route: 048
     Dates: end: 20120926

REACTIONS (6)
  - Withdrawal syndrome [Not Recovered/Not Resolved]
  - Headache [Not Recovered/Not Resolved]
  - Tremor [Not Recovered/Not Resolved]
  - Nausea [Not Recovered/Not Resolved]
  - Abdominal discomfort [Not Recovered/Not Resolved]
  - Insomnia [Unknown]
